FAERS Safety Report 6456103-3 (Version None)
Quarter: 2009Q4

REPORT INFORMATION
  Report Type: 
  Country: None (occurrence: None)
  Receive Date: 20091119
  Receipt Date: 20091109
  Transmission Date: 20100525
  Serious: Yes (Disabling, Other)
  Sender: FDA-Public Use
  Company Number: ADR50622009

PATIENT
  Age: 59 Year
  Sex: Male

DRUGS (11)
  1. CITALOPRAM HYDROBROMIDE [Suspect]
     Indication: ANTIDEPRESSANT THERAPY
     Dosage: 20 MG ORAL
     Route: 048
  2. ASPIRIN [Concomitant]
  3. ATENOLOL [Concomitant]
  4. BETNOVATE [Concomitant]
  5. COAL TAR EXTRACT [Concomitant]
  6. DOVONEX [Concomitant]
  7. EXOREX [Concomitant]
  8. FUROSEMIDE [Concomitant]
  9. LOSARTAN [Concomitant]
  10. SIMVASTATIN [Concomitant]
  11. XAMIOL [Concomitant]

REACTIONS (1)
  - DEAFNESS [None]
